FAERS Safety Report 25159508 (Version 1)
Quarter: 2025Q2

REPORT INFORMATION
  Report Type: Spontaneous
  Country: US (occurrence: US)
  Receive Date: 20250404
  Receipt Date: 20250404
  Transmission Date: 20250716
  Serious: Yes (Hospitalization, Other)
  Sender: NOVITIUM PHARMA
  Company Number: US-NOVITIUMPHARMA-2025USNVP00814

PATIENT
  Age: 47 Year
  Sex: Male

DRUGS (7)
  1. PYRAZINAMIDE [Suspect]
     Active Substance: PYRAZINAMIDE
     Indication: Lymph node tuberculosis
  2. METHOTREXATE [Concomitant]
     Active Substance: METHOTREXATE
     Indication: Rheumatoid arthritis
  3. ISONIAZID [Concomitant]
     Active Substance: ISONIAZID
  4. RIFAMPIN [Concomitant]
     Active Substance: RIFAMPIN
  5. ETHAMBUTOL [Concomitant]
     Active Substance: ETHAMBUTOL HYDROCHLORIDE
  6. TOZINAMERAN [Concomitant]
     Active Substance: TOZINAMERAN
     Indication: COVID-19 immunisation
     Dosage: TWO DOSES
  7. TOZINAMERAN [Concomitant]
     Active Substance: TOZINAMERAN

REACTIONS (1)
  - Immune reconstitution inflammatory syndrome [Recovering/Resolving]
